FAERS Safety Report 7064743-6 (Version None)
Quarter: 2010Q4

REPORT INFORMATION
  Report Type: 
  Country: None (occurrence: None)
  Receive Date: 20101027
  Receipt Date: 19741219
  Transmission Date: 20110411
  Serious: Yes (Death, Life-Threatening, Hospitalization)
  Sender: FDA-Public Use
  Company Number: BB-ROCHE-740112773001

PATIENT
  Sex: Male

DRUGS (4)
  1. VALIUM [Suspect]
     Indication: PRODUCT USED FOR UNKNOWN INDICATION
     Route: 042
     Dates: start: 19730703, end: 19730703
  2. VALIUM [Suspect]
     Indication: PRODUCT USED FOR UNKNOWN INDICATION
     Route: 048
  3. AMPICILLIN [Concomitant]
     Route: 065
  4. OSPEN [Concomitant]
     Route: 030
     Dates: start: 19730630

REACTIONS (3)
  - BRONCHOPNEUMONIA [None]
  - CARDIO-RESPIRATORY ARREST [None]
  - CEREBELLAR HAEMORRHAGE [None]
